FAERS Safety Report 10431187 (Version 1)
Quarter: 2014Q3

REPORT INFORMATION
  Report Type: Spontaneous
  Country: US (occurrence: None)
  Receive Date: 20140902
  Receipt Date: 20140902
  Transmission Date: 20150326
  Serious: Yes (Hospitalization)
  Sender: FDA-Public Use
  Company Number: 2014ST000112

PATIENT
  Age: 21 Year
  Sex: Female
  Weight: 43.1 kg

DRUGS (11)
  1. NYSTATIN. [Concomitant]
     Active Substance: NYSTATIN
  2. OXYCONTIN [Concomitant]
     Active Substance: OXYCODONE HYDROCHLORIDE
  3. MERCAPTOPURINE. [Concomitant]
     Active Substance: MERCAPTOPURINE
  4. GABAPENTIN. [Concomitant]
     Active Substance: GABAPENTIN
  5. CYPROHEPTADINE. [Concomitant]
     Active Substance: CYPROHEPTADINE
  6. UCERIS [Suspect]
     Active Substance: BUDESONIDE
     Indication: COLITIS ULCERATIVE
     Route: 048
     Dates: start: 201303, end: 2013
  7. PREDNISONE (PREDNISONE) [Suspect]
     Active Substance: PREDNISONE
     Indication: PYODERMA GANGRENOSUM
     Dates: start: 2013
  8. TACROLIMUS. [Concomitant]
     Active Substance: TACROLIMUS
  9. IRON [Concomitant]
     Active Substance: IRON
  10. PERCOCET (OXYCODONE HYDROCHLORIDE, PARACETAMOL) [Concomitant]
  11. SENOKOT (SENNA ALEXANDRINA) [Concomitant]

REACTIONS (4)
  - Anaemia [None]
  - Adrenal insufficiency [None]
  - Pyoderma gangrenosum [None]
  - Asthenia [None]

NARRATIVE: CASE EVENT DATE: 20130406
